FAERS Safety Report 10345233 (Version 1)
Quarter: 2014Q3

REPORT INFORMATION
  Report Type: Spontaneous
  Country: GB (occurrence: GB)
  Receive Date: 20140728
  Receipt Date: 20140728
  Transmission Date: 20150326
  Serious: Yes (Other)
  Sender: FDA-Public Use
  Company Number: GB-PFIZER INC-2014205174

PATIENT
  Age: 43 Year
  Sex: Female
  Weight: 76 kg

DRUGS (9)
  1. NITROFURANTOIN. [Concomitant]
     Active Substance: NITROFURANTOIN
     Dosage: UNK
     Dates: start: 20140711
  2. DICLOFENAC POTASSIUM. [Concomitant]
     Active Substance: DICLOFENAC POTASSIUM
     Dates: start: 20140619, end: 20140709
  3. GABAPENTIN. [Suspect]
     Active Substance: GABAPENTIN
     Indication: NECK PAIN
     Dosage: LOW DOSE.
     Dates: start: 20140704
  4. DERMOL [Concomitant]
     Active Substance: BENZALKONIUM CHLORIDE\CHLORHEXIDINE HYDROCHLORIDE\ISOPROPYL MYRISTATE\PARAFFIN
     Dates: start: 20140711
  5. PREDNISOLONE. [Concomitant]
     Active Substance: PREDNISOLONE
     Dosage: UNK
     Dates: start: 20140711
  6. DICLOFENAC POTASSIUM. [Concomitant]
     Active Substance: DICLOFENAC POTASSIUM
     Dates: start: 20140704
  7. FLUOXETINE [Concomitant]
     Active Substance: FLUOXETINE\FLUOXETINE HYDROCHLORIDE
     Dates: start: 20140313, end: 20140412
  8. FUSIDIC ACID [Concomitant]
     Active Substance: FUSIDIC ACID
     Dosage: UNK
     Dates: start: 20140711
  9. FLUOXETINE [Concomitant]
     Active Substance: FLUOXETINE\FLUOXETINE HYDROCHLORIDE
     Dates: start: 20140516, end: 20140615

REACTIONS (2)
  - Dermatitis bullous [Recovering/Resolving]
  - Stevens-Johnson syndrome [Recovering/Resolving]

NARRATIVE: CASE EVENT DATE: 20140711
